FAERS Safety Report 4299920-0 (Version None)
Quarter: 2004Q1

REPORT INFORMATION
  Report Type: 
  Country: None (occurrence: None)
  Receive Date: 20040220
  Receipt Date: 20040217
  Transmission Date: 20041129
  Serious: Yes (Other)
  Sender: FDA-Public Use
  Company Number: 200411222US

PATIENT
  Age: 53 Year
  Sex: Female

DRUGS (6)
  1. TAXOTERE [Suspect]
     Indication: BREAST CANCER
     Dosage: DOSE: UNK
     Dates: end: 20030120
  2. DOXORUBICIN HCL [Concomitant]
     Indication: BREAST CANCER
     Dates: end: 20030120
  3. CYCLOPHOSPHAMIDE [Concomitant]
     Indication: BREAST CANCER
     Dates: end: 20030120
  4. REMERON [Concomitant]
  5. PAXIL [Concomitant]
  6. LORTAB [Concomitant]

REACTIONS (1)
  - LYMPHOCYTIC LEUKAEMIA [None]
